FAERS Safety Report 12066433 (Version 2)
Quarter: 2016Q2

REPORT INFORMATION
  Report Type: Spontaneous
  Country: US (occurrence: US)
  Receive Date: 20160210
  Receipt Date: 20160609
  Transmission Date: 20160815
  Serious: No
  Sender: FDA-Public Use
  Company Number: US-JNJFOC-20160112969

PATIENT
  Sex: Male

DRUGS (4)
  1. RISPERDAL [Suspect]
     Active Substance: RISPERIDONE
     Indication: AGITATION
     Route: 048
     Dates: start: 2013
  2. RISPERDAL [Suspect]
     Active Substance: RISPERIDONE
     Indication: INSOMNIA
     Route: 048
     Dates: start: 2013
  3. RISPERDAL [Suspect]
     Active Substance: RISPERIDONE
     Indication: AGITATION
     Route: 048
     Dates: start: 2012, end: 2014
  4. RISPERDAL [Suspect]
     Active Substance: RISPERIDONE
     Indication: INSOMNIA
     Route: 048
     Dates: start: 2012, end: 2014

REACTIONS (4)
  - Abnormal weight gain [Unknown]
  - Off label use [Unknown]
  - Product use issue [Unknown]
  - Gynaecomastia [Unknown]

NARRATIVE: CASE EVENT DATE: 2012
